FAERS Safety Report 5526673-8 (Version None)
Quarter: 2007Q4

REPORT INFORMATION
  Report Type: 
  Country: None (occurrence: None)
  Receive Date: 20071127
  Receipt Date: 20071116
  Transmission Date: 20080405
  Serious: Yes (Other)
  Sender: FDA-Public Use
  Company Number: US-JNJFOC-20071106765

PATIENT
  Sex: Female
  Weight: 59.88 kg

DRUGS (5)
  1. FENTANYL TRANSDERMAL SYSTEM [Suspect]
     Indication: PAIN
     Route: 062
  2. DARVON [Concomitant]
     Indication: PAIN
     Route: 048
  3. CLONAZEPAM [Concomitant]
     Indication: TREMOR
     Route: 048
  4. VALIUM [Concomitant]
     Route: 048
  5. VALIUM [Concomitant]
     Indication: TREMOR
     Route: 048

REACTIONS (4)
  - CONVULSION [None]
  - MUSCLE TWITCHING [None]
  - PHARMACEUTICAL PRODUCT COMPLAINT [None]
  - WRONG TECHNIQUE IN DRUG USAGE PROCESS [None]
